FAERS Safety Report 18742025 (Version 2)
Quarter: 2021Q1

REPORT INFORMATION
  Report Type: Spontaneous
  Country: US (occurrence: US)
  Receive Date: 20210114
  Receipt Date: 20210121
  Transmission Date: 20210419
  Serious: Yes (Other)
  Sender: FDA-Public Use
  Company Number: US-PFIZER INC-2021018496

PATIENT
  Age: 60 Year
  Sex: Female

DRUGS (9)
  1. DROPERIDOL. [Suspect]
     Active Substance: DROPERIDOL
     Dosage: 1.25 MG AT INDUCTION
  2. PROGESTERONE. [Concomitant]
     Active Substance: PROGESTERONE
     Dosage: UNK
  3. OMEPRAZOLE. [Concomitant]
     Active Substance: OMEPRAZOLE
     Dosage: UNK
  4. CEFOTETAN DISODIUM [Concomitant]
     Active Substance: CEFOTETAN DISODIUM
     Dosage: UNK
  5. MIDAZOLAM. [Concomitant]
     Active Substance: MIDAZOLAM
     Dosage: UNK
  6. FENTANYL. [Concomitant]
     Active Substance: FENTANYL
     Dosage: UNK
  7. SUCRALFATE. [Concomitant]
     Active Substance: SUCRALFATE
     Dosage: UNK
  8. SUXAMETHONIUM [Concomitant]
     Active Substance: SUCCINYLCHOLINE
     Dosage: UNK
  9. TUBOCURARINE. [Concomitant]
     Active Substance: TUBOCURARINE
     Dosage: UNK

REACTIONS (3)
  - Extrasystoles [Unknown]
  - Hypertension [Unknown]
  - Myocardial infarction [Unknown]
